FAERS Safety Report 8551602-2 (Version None)
Quarter: 2012Q3

REPORT INFORMATION
  Report Type: 
  Country: None (occurrence: None)
  Receive Date: 20120730
  Receipt Date: 20120727
  Transmission Date: 20120928
  Serious: Yes (Hospitalization, Other)
  Sender: FDA-Public Use
  Company Number: GB-BAYER-2012-075861

PATIENT
  Age: 33 Year
  Sex: Female
  Weight: 65 kg

DRUGS (4)
  1. ADAPALENE [Concomitant]
     Dosage: UNK
     Dates: start: 20120607
  2. BETAMETHASONE [Concomitant]
     Dosage: UNK
     Dates: start: 20120417, end: 20120424
  3. DOMPERIDONE [Concomitant]
     Dosage: UNK
     Dates: start: 20120418, end: 20120521
  4. MIRENA [Suspect]
     Dosage: 20 ?G/D, UNK
     Route: 015
     Dates: start: 20120705

REACTIONS (1)
  - PARAESTHESIA [None]
